FAERS Safety Report 20596536 (Version 3)
Quarter: 2022Q2

REPORT INFORMATION
  Report Type: Other
  Country: US (occurrence: None)
  Receive Date: 20220315
  Receipt Date: 20220505
  Transmission Date: 20220720
  Serious: No
  Sender: FDA-Public Use
  Company Number: US-ROCHE-3048952

PATIENT
  Age: 54 Year
  Sex: Female

DRUGS (3)
  1. OCREVUS [Suspect]
     Active Substance: OCRELIZUMAB
     Indication: Relapsing-remitting multiple sclerosis
     Dosage: DATE OF TREATMENT: 2021/09/11, 2020/03/11, 2018/09/12, 2018/03/26, 2018/03/12
     Route: 042
     Dates: start: 20180311
  2. OCREVUS [Suspect]
     Active Substance: OCRELIZUMAB
     Route: 065
     Dates: start: 20180326
  3. PREDNISONE [Concomitant]
     Active Substance: PREDNISONE

REACTIONS (4)
  - SARS-CoV-2 test positive [Recovered/Resolved]
  - Ear infection [Unknown]
  - Infusion related reaction [Unknown]
  - Weight increased [Unknown]

NARRATIVE: CASE EVENT DATE: 20220301
